FAERS Safety Report 17165492 (Version 1)
Quarter: 2019Q4

REPORT INFORMATION
  Report Type: Spontaneous
  Country: US (occurrence: US)
  Receive Date: 20191217
  Receipt Date: 20191217
  Transmission Date: 20200122
  Serious: Yes (Other)
  Sender: FDA-Public Use
  Company Number: US-TEVA-2019-US-1152841

PATIENT
  Age: 66 Year
  Sex: Male

DRUGS (9)
  1. BACLOFEN TABLET TEVA [Suspect]
     Active Substance: BACLOFEN
     Indication: TORTICOLLIS
     Dosage: SINCE 2 YEARS, 145MG (3) AT 6AM
     Route: 048
     Dates: end: 20191126
  2. COLACE [Concomitant]
     Active Substance: DOCUSATE SODIUM
     Indication: CONSTIPATION
     Dosage: 100MG DAILY
     Route: 048
  3. DEPAKOTE ER [Concomitant]
     Active Substance: DIVALPROEX SODIUM
     Indication: BIPOLAR DISORDER
     Dosage: 500MG TWICE DAILY
     Route: 048
  4. RYTARY [Concomitant]
     Active Substance: CARBIDOPA\LEVODOPA
     Indication: PARKINSON^S DISEASE
     Dosage: 145MG (2) AT 11:30AM, 3PM, 6PM, AND 9PM
     Route: 048
  5. BABY ASPRIN [Concomitant]
     Active Substance: ASPIRIN
     Dosage: 81 MG DAILY
     Route: 048
  6. VESICARE [Concomitant]
     Active Substance: SOLIFENACIN SUCCINATE
     Indication: HYPERTONIC BLADDER
     Dosage: 10MG DAILY
     Route: 048
  7. AMANTADINE. [Concomitant]
     Active Substance: AMANTADINE HYDROCHLORIDE
     Dosage: 100 MG TWICE DAILY
     Route: 048
  8. FLOMAX HCL [Concomitant]
     Indication: URINARY RETENTION
     Dosage: 0.4 MG DAILY
     Route: 048
  9. VITAMIN D3 [Concomitant]
     Active Substance: CHOLECALCIFEROL
     Indication: SUPPLEMENTATION THERAPY
     Dosage: 1000 IU DAILY
     Route: 048

REACTIONS (5)
  - Anxiety [Not Recovered/Not Resolved]
  - Hallucination [Not Recovered/Not Resolved]
  - Withdrawal syndrome [Unknown]
  - Dysuria [Not Recovered/Not Resolved]
  - Dysarthria [Not Recovered/Not Resolved]

NARRATIVE: CASE EVENT DATE: 20191129
